FAERS Safety Report 5334814-0 (Version None)
Quarter: 2007Q2

REPORT INFORMATION
  Report Type: 
  Country: None (occurrence: None)
  Receive Date: 20070308
  Receipt Date: 20061121
  Transmission Date: 20071010
  Serious: No
  Sender: FDA-Public Use
  Company Number: 2006-BP-11669BP

PATIENT
  Age: 65 Year
  Sex: Female
  Weight: 47.17 kg

DRUGS (11)
  1. SPIRIVA [Suspect]
     Indication: CHRONIC OBSTRUCTIVE PULMONARY DISEASE
     Dosage: 18 MCG (18 MCG, 1 IN 1 D), IH
     Route: 055
     Dates: start: 20060911, end: 20061009
  2. ALBUTEROL MDI (SALBUTAMOL) [Concomitant]
  3. OXYGEN (OXYGEN) [Concomitant]
  4. CARDIZEM (DILTIAZEM HYDROCHLORIDE)C [Concomitant]
  5. ELAVIL [Concomitant]
  6. DILTIAZEM [Concomitant]
  7. AMITRIPTYLINE HCL [Concomitant]
  8. COMBIVENT (COMBIVENT /01261001/) [Concomitant]
  9. CELEXA [Concomitant]
  10. LEVOTHYROXINE SODIUM [Concomitant]
  11. SINEQUAN [Concomitant]

REACTIONS (5)
  - BLOOD PRESSURE INCREASED [None]
  - CONSTIPATION [None]
  - GENERALISED ERYTHEMA [None]
  - HYPERSENSITIVITY [None]
  - TINNITUS [None]
